FAERS Safety Report 14370082 (Version 1)
Quarter: 2018Q1

REPORT INFORMATION
  Report Type: Spontaneous
  Country: US (occurrence: US)
  Receive Date: 20180110
  Receipt Date: 20180110
  Transmission Date: 20180509
  Serious: No
  Sender: FDA-Public Use
  Company Number: US-APOTEX-2017AP020247

PATIENT
  Age: 18 Year
  Sex: Male

DRUGS (2)
  1. LITHIUM CARBONATE. [Suspect]
     Active Substance: LITHIUM CARBONATE
     Indication: SUBSTANCE DEPENDENCE
  2. LITHIUM CARBONATE. [Suspect]
     Active Substance: LITHIUM CARBONATE
     Indication: BIPOLAR I DISORDER
     Dosage: 1500 MG, UNK
     Route: 065

REACTIONS (4)
  - Treatment noncompliance [Unknown]
  - Blunted affect [Unknown]
  - Tremor [Unknown]
  - Pollakiuria [Unknown]
